FAERS Safety Report 6349258-2 (Version None)
Quarter: 2009Q3

REPORT INFORMATION
  Report Type: 
  Country: None (occurrence: None)
  Receive Date: 20090911
  Receipt Date: 20090908
  Transmission Date: 20100115
  Serious: Yes (Other)
  Sender: FDA-Public Use
  Company Number: A0793605A

PATIENT
  Sex: Male
  Weight: 128.2 kg

DRUGS (1)
  1. AVANDIA [Suspect]
     Dosage: 8MG PER DAY
     Route: 048
     Dates: start: 20040101, end: 20080501

REACTIONS (4)
  - CARDIAC FAILURE CONGESTIVE [None]
  - OEDEMA [None]
  - SLEEP APNOEA SYNDROME [None]
  - WEIGHT INCREASED [None]
